FAERS Safety Report 7502230-9 (Version None)
Quarter: 2011Q2

REPORT INFORMATION
  Report Type: 
  Country: None (occurrence: None)
  Receive Date: 20110525
  Receipt Date: 20110511
  Transmission Date: 20111010
  Serious: Yes (Hospitalization)
  Sender: FDA-Public Use
  Company Number: BR-MEDIMMUNE-MEDI-0013193

PATIENT
  Sex: Female
  Weight: 4.15 kg

DRUGS (6)
  1. VITAMIN D [Concomitant]
     Dates: start: 20110301
  2. SYNAGIS [Suspect]
  3. VITAMIN A [Concomitant]
     Dates: start: 20110301
  4. FERRIC HYDROXIDE POLYMALTOSE COMPLEX [Concomitant]
     Route: 048
     Dates: start: 20110301
  5. SYNAGIS [Suspect]
     Indication: BRONCHOPULMONARY DYSPLASIA
     Route: 030
     Dates: start: 20110429, end: 20110429
  6. AFRIN MOISTURIZING SALINE [Concomitant]
     Indication: NASAL DECONGESTION THERAPY
     Route: 045
     Dates: start: 20110301

REACTIONS (3)
  - PNEUMONIA [None]
  - RESPIRATORY TRACT INFECTION [None]
  - FATIGUE [None]
